FAERS Safety Report 4727378-3 (Version None)
Quarter: 2005Q3

REPORT INFORMATION
  Report Type: 
  Country: None (occurrence: None)
  Receive Date: 20050727
  Receipt Date: 20050727
  Transmission Date: 20060218
  Serious: Yes (Hospitalization)
  Sender: FDA-Public Use
  Company Number: None

PATIENT
  Age: 81 Year
  Sex: Male
  Weight: 70 kg

DRUGS (10)
  1. WARFARIN [Suspect]
     Indication: ATRIAL FIBRILLATION
     Dosage: 5 MG PO  OTO [1 DOSE]
     Route: 048
  2. KETOROLAC [Suspect]
     Indication: PAIN
     Dosage: 15 MG IV Q 6 H PM [4 DOSES]
     Route: 042
  3. COUMADIN [Concomitant]
  4. NEURONTIN [Concomitant]
  5. TOPROL-XL [Concomitant]
  6. ALTACE [Concomitant]
  7. ALBUTEROL [Concomitant]
  8. NORVASC [Concomitant]
  9. XALATAN [Concomitant]
  10. VITAMIN A [Concomitant]

REACTIONS (5)
  - DUODENAL ULCER [None]
  - GASTRIC ULCER [None]
  - HAEMORRHAGE [None]
  - INTERNATIONAL NORMALISED RATIO DECREASED [None]
  - OCCULT BLOOD POSITIVE [None]
